FAERS Safety Report 5331145-X (Version None)
Quarter: 2007Q2

REPORT INFORMATION
  Report Type: 
  Country: None (occurrence: None)
  Receive Date: 20070518
  Receipt Date: 20070518
  Transmission Date: 20071010
  Serious: Yes (Hospitalization)
  Sender: FDA-Public Use
  Company Number: None

PATIENT
  Sex: Female
  Weight: 65 kg

DRUGS (11)
  1. CETUXIMAB [Suspect]
     Indication: PANCREATIC CARCINOMA
     Dosage: 420 MG WEEKLY IV
     Route: 042
     Dates: start: 20070507, end: 20070507
  2. GEMCITABINE [Suspect]
     Indication: PANCREATIC CARCINOMA
     Dosage: 1260 MG EVERY 2 WEEKS IV
     Route: 042
     Dates: start: 20070507, end: 20070507
  3. OXALIPLATIN [Suspect]
     Indication: PANCREATIC CARCINOMA
     Dosage: 126 MG EVERY 2 WEEKS IV
     Route: 042
     Dates: start: 20070507, end: 20070507
  4. CETUXIMAB [Concomitant]
  5. GEMCITABINE [Concomitant]
  6. OXALIPLATIN [Concomitant]
  7. LUNESTA [Concomitant]
  8. MINOCIN [Concomitant]
  9. SENOKOT [Concomitant]
  10. VALTREX [Concomitant]
  11. ZOFRAN [Concomitant]

REACTIONS (4)
  - CATHETER RELATED INFECTION [None]
  - LETHARGY [None]
  - LIVER FUNCTION TEST ABNORMAL [None]
  - PYREXIA [None]
